FAERS Safety Report 9660512 (Version 1)
Quarter: 2013Q4

REPORT INFORMATION
  Report Type: Spontaneous
  Country: GB (occurrence: GB)
  Receive Date: 20131031
  Receipt Date: 20131031
  Transmission Date: 20140711
  Serious: Yes (Hospitalization)
  Sender: FDA-Public Use
  Company Number: PHHY2013GB119405

PATIENT
  Age: 51 Year
  Sex: 0

DRUGS (7)
  1. LEVOFLOXACIN [Suspect]
     Indication: PNEUMONIA
     Route: 041
     Dates: start: 20110519, end: 20110520
  2. LEVOFLOXACIN [Suspect]
     Dosage: 500 MG, BID
     Dates: start: 20110526, end: 20110602
  3. CO-AMOXICLAV [Suspect]
     Indication: PNEUMONIA PNEUMOCOCCAL
     Dates: start: 20110521, end: 20110525
  4. CO-AMOXICLAV [Suspect]
     Dosage: 625 MG, TID
     Route: 048
     Dates: start: 20110526, end: 20110601
  5. CLARITHROMYCIN [Suspect]
     Indication: PNEUMONIA PNEUMOCOCCAL
     Dosage: 500 MG, UNK
     Route: 041
     Dates: start: 20110519, end: 20110525
  6. PIPERACILLIN+TAZOBACTAM [Suspect]
     Route: 041
     Dates: start: 20110607
  7. BENZYLPENICILLIN [Suspect]
     Indication: PNEUMONIA
     Dosage: 1.2 G, UNK
     Route: 041
     Dates: start: 20110518, end: 20110520

REACTIONS (3)
  - Respiratory arrest [Unknown]
  - Clostridium difficile infection [Unknown]
  - Diarrhoea [Unknown]
